FAERS Safety Report 4411093-X (Version None)
Quarter: 2004Q2

REPORT INFORMATION
  Report Type: 
  Country: None (occurrence: None)
  Receive Date: 20040630
  Receipt Date: 20040421
  Transmission Date: 20050107
  Serious: No
  Sender: FDA-Public Use
  Company Number: 04P-163-0258133-00

PATIENT
  Age: 61 Year
  Sex: Female
  Weight: 127.0072 kg

DRUGS (10)
  1. HUMIRA [Suspect]
     Indication: RHEUMATOID ARTHRITIS
     Dosage: 40 MG, 1 IN 2 WK, SUBCUTANEOUS
     Route: 058
     Dates: start: 20040330
  2. CELECOXIB [Concomitant]
  3. GABAPENTIN [Concomitant]
  4. LANSOPRAZOLE [Concomitant]
  5. ATORVASTATIN CALCIUM [Concomitant]
  6. CONJUGATED ESTROGEN [Concomitant]
  7. LEVOTHYROXINE SODIUM [Concomitant]
  8. MONTELUKAST SODIUM [Concomitant]
  9. AMITRIPTYLINE HYDROCHLORIDE [Concomitant]
  10. BUCINDOLOL HYDROCHLORIDE [Concomitant]

REACTIONS (2)
  - INJECTION SITE HAEMORRHAGE [None]
  - INJECTION SITE VESICLES [None]
